FAERS Safety Report 5110932-7 (Version None)
Quarter: 2006Q3

REPORT INFORMATION
  Report Type: 
  Country: None (occurrence: None)
  Receive Date: 20060922
  Receipt Date: 20060912
  Transmission Date: 20061208
  Serious: Yes (Other)
  Sender: FDA-Public Use
  Company Number: US-JNJFOC-20060903299

PATIENT
  Age: 80 Year
  Sex: Female

DRUGS (8)
  1. REMICADE [Suspect]
     Indication: CROHN'S DISEASE
     Route: 042
  2. ULTRACET [Concomitant]
  3. ADVAIR DISKUS 100/50 [Concomitant]
  4. VENTOLIN [Concomitant]
  5. THEODOR [Concomitant]
  6. SINGULAIR [Concomitant]
  7. THYROID TAB [Concomitant]
  8. HEART MEDICATION [Concomitant]

REACTIONS (2)
  - GINGIVAL BLEEDING [None]
  - INCREASED TENDENCY TO BRUISE [None]
